FAERS Safety Report 6934355-0 (Version None)
Quarter: 2010Q3

REPORT INFORMATION
  Report Type: 
  Country: None (occurrence: None)
  Receive Date: 20100820
  Receipt Date: 20100813
  Transmission Date: 20110219
  Serious: Yes (Hospitalization)
  Sender: FDA-Public Use
  Company Number: A0876566A

PATIENT
  Sex: Female

DRUGS (1)
  1. AVANDARYL [Suspect]
     Route: 048
     Dates: start: 20000101, end: 20050101

REACTIONS (4)
  - CARDIAC FAILURE CONGESTIVE [None]
  - DEFORMITY [None]
  - MYOCARDIAL INFARCTION [None]
  - PHYSICAL DISABILITY [None]
